FAERS Safety Report 8490226-2 (Version None)
Quarter: 2012Q3

REPORT INFORMATION
  Report Type: 
  Country: None (occurrence: None)
  Receive Date: 20120705
  Receipt Date: 20111028
  Transmission Date: 20120928
  Serious: No
  Sender: FDA-Public Use
  Company Number: US-BAUSCH-2011BL007926

PATIENT
  Age: 54 Year
  Sex: Female

DRUGS (2)
  1. OPCON-A [Suspect]
     Indication: EYE ALLERGY
     Route: 047
     Dates: start: 20110911, end: 20110911
  2. OPCON-A [Suspect]
     Route: 047
     Dates: start: 20111001, end: 20111001

REACTIONS (2)
  - VISION BLURRED [None]
  - MYDRIASIS [None]
